FAERS Safety Report 20006726 (Version 2)
Quarter: 2021Q4

REPORT INFORMATION
  Report Type: Spontaneous
  Country: JP (occurrence: JP)
  Receive Date: 20211028
  Receipt Date: 20211118
  Transmission Date: 20220304
  Serious: Yes (Other)
  Sender: FDA-Public Use
  Company Number: JP-MLMSERVICE-20211012-3154905-1

PATIENT
  Age: 65 Year
  Sex: Female
  Weight: 48.2 kg

DRUGS (3)
  1. CARBOPLATIN [Suspect]
     Active Substance: CARBOPLATIN
     Indication: Metastases to lymph nodes
     Dosage: (AUC 5 MG/ML/MIN Q3W),
  2. PEMETREXED [Suspect]
     Active Substance: PEMETREXED
     Indication: Metastases to lymph nodes
     Dosage: 500 MG/M2 Q3W
  3. PEMBROLIZUMAB [Suspect]
     Active Substance: PEMBROLIZUMAB
     Indication: Metastases to lymph nodes
     Dosage: (400 MG Q3W),

REACTIONS (2)
  - Peripheral nerve palsy [Unknown]
  - Dysgeusia [Unknown]
